FAERS Safety Report 7466443-7 (Version None)
Quarter: 2011Q2

REPORT INFORMATION
  Report Type: 
  Country: None (occurrence: None)
  Receive Date: 20110509
  Receipt Date: 20100909
  Transmission Date: 20111010
  Serious: Yes (Hospitalization)
  Sender: FDA-Public Use
  Company Number: US-ALEXION-A201000795

PATIENT
  Sex: Male

DRUGS (8)
  1. FOLIC ACID [Concomitant]
     Indication: PAROXYSMAL NOCTURNAL HAEMOGLOBINURIA
     Dosage: 5 MG, QD
     Route: 048
  2. PREDNISONE [Concomitant]
     Indication: PAROXYSMAL NOCTURNAL HAEMOGLOBINURIA
     Dosage: 5 MG, QD
     Route: 048
  3. SOLIRIS [Suspect]
     Indication: PAROXYSMAL NOCTURNAL HAEMOGLOBINURIA
     Dosage: 600 MG, QW FOR 5 WEEKS
     Route: 042
     Dates: start: 20070425
  4. ASPIRIN [Concomitant]
     Indication: ANTICOAGULANT THERAPY
     Dosage: 81 MG, QD
     Route: 048
  5. SOLIRIS [Suspect]
     Dosage: 900 MG Q 14 DAYS
     Route: 042
     Dates: start: 20070601
  6. TESTOSTERONE [Concomitant]
     Dosage: MONTHLY INJECTION
  7. METOPROLOL TARTRATE [Concomitant]
     Dosage: UNK
     Dates: end: 20100707
  8. FERROUS GLUCONATE [Concomitant]
     Indication: BLOOD IRON DECREASED
     Dosage: 27 MG, QD
     Route: 048

REACTIONS (14)
  - NEPHROLITHIASIS [None]
  - CHILLS [None]
  - NAUSEA [None]
  - DIARRHOEA [None]
  - HAEMATOCRIT DECREASED [None]
  - CHEST DISCOMFORT [None]
  - HYPOTENSION [None]
  - BLOOD PRESSURE INCREASED [None]
  - DECREASED APPETITE [None]
  - HEART RATE DECREASED [None]
  - DEHYDRATION [None]
  - PYREXIA [None]
  - HEADACHE [None]
  - FATIGUE [None]
